FAERS Safety Report 6905835-9 (Version None)
Quarter: 2010Q3

REPORT INFORMATION
  Report Type: 
  Country: None (occurrence: None)
  Receive Date: 20100804
  Receipt Date: 20100726
  Transmission Date: 20110219
  Serious: Yes (Death, Other)
  Sender: FDA-Public Use
  Company Number: CA-ROCHE-713528

PATIENT
  Sex: Male
  Weight: 115.7 kg

DRUGS (6)
  1. BEVACIZUMAB [Suspect]
     Indication: GLIOBLASTOMA
     Dosage: FORM: INFUSION
     Route: 042
     Dates: start: 20091204, end: 20100717
  2. TEMOZOLOMIDE [Concomitant]
  3. TEMODAL [Concomitant]
     Dosage: DRUG REPORTED AS TEMODOL
  4. DILANTIN [Concomitant]
  5. FRISIUM [Concomitant]
  6. DECADRON [Concomitant]

REACTIONS (7)
  - DEATH [None]
  - DIZZINESS [None]
  - DYSPNOEA [None]
  - GLOSSODYNIA [None]
  - MALIGNANT NEOPLASM PROGRESSION [None]
  - RASH ERYTHEMATOUS [None]
  - TREMOR [None]
